FAERS Safety Report 12362960 (Version 1)
Quarter: 2016Q2

REPORT INFORMATION
  Report Type: Spontaneous
  Country: US (occurrence: US)
  Receive Date: 20160512
  Receipt Date: 20160512
  Transmission Date: 20160815
  Serious: No
  Sender: FDA-Public Use
  Company Number: US-UCBSA-2015004560

PATIENT
  Sex: Female
  Weight: 68.3 kg

DRUGS (1)
  1. CIMZIA [Suspect]
     Active Substance: CERTOLIZUMAB PEGOL
     Indication: RHEUMATOID ARTHRITIS
     Dosage: 200 MG, EV 2 WEEKS(QOW)
     Route: 058
     Dates: start: 201407

REACTIONS (9)
  - Injection site swelling [Unknown]
  - Peripheral swelling [Unknown]
  - Injection site reaction [Unknown]
  - Injection site extravasation [Unknown]
  - Weight increased [Unknown]
  - Injection site rash [Unknown]
  - Injection site bruising [Unknown]
  - Rheumatoid arthritis [Unknown]
  - Pain [Unknown]
